FAERS Safety Report 25951468 (Version 1)
Quarter: 2025Q4

REPORT INFORMATION
  Report Type: Spontaneous
  Country: US (occurrence: US)
  Receive Date: 20251023
  Receipt Date: 20251023
  Transmission Date: 20260118
  Serious: Yes (Other)
  Sender: AUROBINDO
  Company Number: US-AUROBINDO-AUR-APL-2025-052646

PATIENT
  Age: 56 Year
  Sex: Male

DRUGS (1)
  1. OXACILLIN [Suspect]
     Active Substance: OXACILLIN SODIUM
     Indication: Staphylococcal bacteraemia
     Dosage: 2 GRAM (OXACILLIN 2 G EVERY 4 HOURS, )
     Route: 065

REACTIONS (1)
  - Eosinophilic myocarditis [Recovered/Resolved]
